FAERS Safety Report 5692036-8 (Version None)
Quarter: 2008Q2

REPORT INFORMATION
  Report Type: 
  Country: None (occurrence: None)
  Receive Date: 20080402
  Receipt Date: 20080328
  Transmission Date: 20081010
  Serious: Yes (Death)
  Sender: FDA-Public Use
  Company Number: US-MERCK-0803USA03575

PATIENT
  Age: 86 Year
  Sex: Male

DRUGS (7)
  1. JANUVIA [Suspect]
     Indication: TYPE 2 DIABETES MELLITUS
     Route: 048
     Dates: start: 20070501, end: 20080317
  2. POTASSIUM CHLORIDE [Concomitant]
     Route: 065
  3. NIFEDIAC [Concomitant]
     Route: 065
  4. GLYBURIDE [Concomitant]
     Route: 065
  5. SULINDAC [Concomitant]
     Route: 065
  6. GLYCOLAX [Concomitant]
     Route: 065
  7. POLYETHYLENE GLYCOL [Concomitant]
     Route: 065

REACTIONS (1)
  - CARDIAC FAILURE CONGESTIVE [None]
